FAERS Safety Report 16724044 (Version 1)
Quarter: 2019Q3

REPORT INFORMATION
  Report Type: Spontaneous
  Country: GB (occurrence: GB)
  Receive Date: 20190821
  Receipt Date: 20190821
  Transmission Date: 20191005
  Serious: Yes (Death, Hospitalization)
  Sender: FDA-Public Use
  Company Number: GB-ACCORD-151968

PATIENT
  Age: 60 Year
  Sex: Male

DRUGS (3)
  1. CISPLATIN. [Suspect]
     Active Substance: CISPLATIN
     Indication: NASOPHARYNGEAL CANCER
     Dates: start: 20190409
  2. DOCETAXEL. [Suspect]
     Active Substance: DOCETAXEL
     Indication: NASOPHARYNGEAL CANCER
     Dates: start: 20190409
  3. FLUOROURACIL. [Suspect]
     Active Substance: FLUOROURACIL
     Indication: NASOPHARYNGEAL CANCER
     Dates: start: 20190409

REACTIONS (15)
  - Neutropenic sepsis [Fatal]
  - Hypotension [Unknown]
  - Oral candidiasis [Unknown]
  - Oropharyngeal pain [Unknown]
  - Productive cough [Unknown]
  - Tachycardia [Unknown]
  - Vomiting [Unknown]
  - Body temperature increased [Unknown]
  - Hypophagia [Unknown]
  - Stomatitis [Unknown]
  - Hypoxia [Unknown]
  - Nausea [Unknown]
  - Tachypnoea [Unknown]
  - Malaise [Unknown]
  - Arrhythmia [Not Recovered/Not Resolved]

NARRATIVE: CASE EVENT DATE: 20190412
